FAERS Safety Report 10036391 (Version 3)
Quarter: 2014Q1

REPORT INFORMATION
  Report Type: Spontaneous
  Country: US (occurrence: US)
  Receive Date: 20140325
  Receipt Date: 20140328
  Transmission Date: 20141002
  Serious: Yes (Other)
  Sender: FDA-Public Use
  Company Number: PHHY2014US022291

PATIENT
  Sex: Male

DRUGS (4)
  1. BACLOFEN INTRATHECAL [Suspect]
     Indication: MUSCLE SPASTICITY
     Dosage: 350 UG, DAILY
     Route: 037
     Dates: start: 20070108, end: 20140202
  2. LAMOTRIGINE [Suspect]
     Dosage: UNK UKN, UNK
  3. PREVACID [Suspect]
     Dosage: UNK UKN, UNK
  4. PEG 3350 GRX [Suspect]
     Dosage: UNK UKN, UNK

REACTIONS (4)
  - Implant site erosion [Unknown]
  - Implant site erythema [Unknown]
  - Implant site infection [Unknown]
  - Staphylococcal infection [Unknown]
